FAERS Safety Report 6188934-1 (Version None)
Quarter: 2009Q2

REPORT INFORMATION
  Report Type: 
  Country: None (occurrence: None)
  Receive Date: 20090513
  Receipt Date: 20090428
  Transmission Date: 20091009
  Serious: Yes (Other)
  Sender: FDA-Public Use
  Company Number: FR-GENENTECH-282454

PATIENT
  Sex: Female

DRUGS (3)
  1. AVASTIN [Suspect]
     Indication: BREAST CANCER
     Dosage: 1095 MG, UNK
     Route: 042
     Dates: start: 20090210, end: 20090210
  2. DOCETAXEL [Suspect]
     Indication: BREAST CANCER
     Dosage: 150 MG, UNK
     Route: 042
     Dates: start: 20090210, end: 20090210
  3. MEDROL [Suspect]
     Indication: PREMEDICATION
     Dosage: 100 MG, UNK
     Route: 048
     Dates: start: 20090210, end: 20090210

REACTIONS (3)
  - CONJUNCTIVAL IRRITATION [None]
  - LACRIMATION INCREASED [None]
  - ONYCHOLYSIS [None]
